FAERS Safety Report 14628359 (Version 1)
Quarter: 2018Q1

REPORT INFORMATION
  Report Type: Spontaneous
  Country: RU (occurrence: RU)
  Receive Date: 20180312
  Receipt Date: 20180312
  Transmission Date: 20180509
  Serious: Yes (Other)
  Sender: FDA-Public Use
  Company Number: RU-ASTRAZENECA-2018SE29712

PATIENT
  Age: 56 Year
  Sex: Male
  Weight: 96 kg

DRUGS (8)
  1. CRESTOR [Suspect]
     Active Substance: ROSUVASTATIN CALCIUM
     Indication: BLOOD CHOLESTEROL INCREASED
     Route: 048
     Dates: start: 201712
  2. CRESTOR [Suspect]
     Active Substance: ROSUVASTATIN CALCIUM
     Indication: BLOOD CHOLESTEROL INCREASED
     Route: 048
     Dates: start: 201708, end: 201712
  3. CARDIOMAGNYL [Concomitant]
     Active Substance: ASPIRIN\MAGNESIUM HYDROXIDE
  4. BISOPROLOL [Concomitant]
     Active Substance: BISOPROLOL
  5. EPLERENONE. [Concomitant]
     Active Substance: EPLERENONE
  6. BRILINTA [Suspect]
     Active Substance: TICAGRELOR
     Route: 048
  7. PRESTARIUM [Concomitant]
     Active Substance: PERINDOPRIL
  8. WARFARIN [Concomitant]
     Active Substance: WARFARIN

REACTIONS (3)
  - Blood cholesterol increased [Unknown]
  - Myocardial infarction [Unknown]
  - Chest discomfort [Unknown]

NARRATIVE: CASE EVENT DATE: 20171020
